FAERS Safety Report 19119673 (Version 1)
Quarter: 2021Q2

REPORT INFORMATION
  Report Type: Report from Study
  Country: ZA (occurrence: ZA)
  Receive Date: 20210412
  Receipt Date: 20210412
  Transmission Date: 20210717
  Serious: Yes (Death, Hospitalization)
  Sender: FDA-Public Use
  Company Number: ZA-AMGEN LTD-ZAFSL2021053239

PATIENT
  Age: 71 Year
  Sex: Female

DRUGS (1)
  1. ARANESP [Suspect]
     Active Substance: DARBEPOETIN ALFA
     Indication: CHRONIC KIDNEY DISEASE
     Dosage: 40 MICROGRAM, Q2WK
     Route: 058
     Dates: start: 20191106, end: 202102

REACTIONS (1)
  - COVID-19 [Fatal]
